FAERS Safety Report 19046927 (Version 1)
Quarter: 2021Q1

REPORT INFORMATION
  Report Type: Spontaneous
  Country: DE (occurrence: DE)
  Receive Date: 20210322
  Receipt Date: 20210322
  Transmission Date: 20210420
  Serious: Yes (Other)
  Sender: FDA-Public Use
  Company Number: DE-CELLTRION INC.-2021DE003544

PATIENT

DRUGS (4)
  1. RITUXIMAB (UNKNOWN) [Suspect]
     Active Substance: RITUXIMAB
     Indication: GRANULOMATOSIS WITH POLYANGIITIS
     Dosage: 1000 MG AT WEEKS 0?2 AND THEN 500 MG EVERY 6 MONTHS THEREAFTER
     Dates: start: 2010
  2. AZATHIOPRINE. [Suspect]
     Active Substance: AZATHIOPRINE
     Indication: GRANULOMATOSIS WITH POLYANGIITIS
     Dosage: 150 MG/DAY
     Dates: start: 2010
  3. SULFAMETHOXAZOLE;TRIMETHOPRIM [Concomitant]
     Active Substance: SULFAMETHOXAZOLE\TRIMETHOPRIM
     Indication: PROPHYLAXIS
     Dosage: UNK
  4. INFLIXIMAB (UNKNOWN) [Suspect]
     Active Substance: INFLIXIMAB
     Indication: GRANULOMATOSIS WITH POLYANGIITIS
     Dosage: 400 MG, AT WEEKS 0?2?6 AND EVERY 6 WEEKS THEREAFTER
     Route: 042
     Dates: start: 2011

REACTIONS (4)
  - Disease progression [Recovering/Resolving]
  - Granulomatosis with polyangiitis [Recovering/Resolving]
  - Off label use [Unknown]
  - Orbital granuloma [Recovering/Resolving]
